FAERS Safety Report 7217060-5 (Version None)
Quarter: 2011Q1

REPORT INFORMATION
  Report Type: 
  Country: None (occurrence: None)
  Receive Date: 20110110
  Receipt Date: 20101231
  Transmission Date: 20110831
  Serious: Yes (Hospitalization)
  Sender: FDA-Public Use
  Company Number: GB-NOVOPROD-320879

PATIENT
  Sex: Female

DRUGS (2)
  1. NOVORAPID FLEXPEN [Suspect]
     Indication: GESTATIONAL DIABETES
     Dosage: 16 IU, QD (4+12)
     Route: 058
     Dates: end: 20101229
  2. METFORMIN [Concomitant]
     Dosage: 50 MG, BID

REACTIONS (4)
  - ARRHYTHMIA [None]
  - VASCULITIC RASH [None]
  - DRUG EXPOSURE DURING PREGNANCY [None]
  - INJECTION SITE RASH [None]
